FAERS Safety Report 23143289 (Version 1)
Quarter: 2023Q4

REPORT INFORMATION
  Report Type: Spontaneous
  Country: US (occurrence: US)
  Receive Date: 20231103
  Receipt Date: 20231103
  Transmission Date: 20240109
  Serious: Yes (Other)
  Sender: FDA-Public Use
  Company Number: US-AstraZeneca-2023A240985

PATIENT
  Sex: Male

DRUGS (15)
  1. BUDESONIDE [Suspect]
     Active Substance: BUDESONIDE
     Dosage: 32 MCG/ACT
     Route: 055
  2. FASENRA [Suspect]
     Active Substance: BENRALIZUMAB
     Indication: Asthma
     Dosage: 30MG/ML EVERY EIGHT WEEKS/SOLUTION FOR INJECTION IN PRE-FILLED PEN
     Route: 058
  3. ROSUVASTATIN [Suspect]
     Active Substance: ROSUVASTATIN
     Route: 048
  4. LEVOFLOXACIN [Concomitant]
     Active Substance: LEVOFLOXACIN
  5. ADDERALL [Concomitant]
     Active Substance: AMPHETAMINE ASPARTATE\AMPHETAMINE SULFATE\DEXTROAMPHETAMINE SACCHARATE\DEXTROAMPHETAMINE SULFATE
  6. ALBUTEROL [Concomitant]
     Active Substance: ALBUTEROL
  7. DEXILANT [Concomitant]
     Active Substance: DEXLANSOPRAZOLE
  8. DOXYCYCLINE [Concomitant]
     Active Substance: DOXYCYCLINE
  9. MONTELUKAST [Concomitant]
     Active Substance: MONTELUKAST SODIUM
  10. MUCINEX [Concomitant]
     Active Substance: GUAIFENESIN
  11. OMEGA 3 [Concomitant]
     Active Substance: CAPSAICIN
  12. PREDNISONE [Concomitant]
     Active Substance: PREDNISONE
  13. Prevegan [Concomitant]
  14. VITAMIN C [Concomitant]
     Active Substance: ASCORBIC ACID
  15. VITAMIN D [Concomitant]
     Active Substance: VITAMIN D NOS

REACTIONS (6)
  - Skin cancer [Unknown]
  - Ear infection staphylococcal [Unknown]
  - Respiratory disorder [Unknown]
  - Sinus disorder [Unknown]
  - Dyspnoea [Unknown]
  - Lung disorder [Unknown]
